FAERS Safety Report 8111837-X (Version None)
Quarter: 2012Q1

REPORT INFORMATION
  Report Type: 
  Country: None (occurrence: None)
  Receive Date: 20120203
  Receipt Date: 20120127
  Transmission Date: 20120608
  Serious: Yes (Hospitalization, Other)
  Sender: FDA-Public Use
  Company Number: US-JNJFOC-20120113066

PATIENT
  Sex: Male
  Weight: 111.13 kg

DRUGS (13)
  1. FENTANYL-100 [Suspect]
     Route: 062
  2. SIMVASTATIN [Concomitant]
     Indication: BLOOD CHOLESTEROL INCREASED
     Route: 048
  3. BACLOFEN [Concomitant]
     Indication: MUSCLE RELAXANT THERAPY
     Route: 048
  4. CLONIDINE [Concomitant]
     Indication: MUSCLE RELAXANT THERAPY
     Route: 048
  5. FENTANYL-100 [Suspect]
     Route: 062
     Dates: start: 20090101, end: 20090101
  6. FENTANYL-100 [Suspect]
     Route: 062
  7. KLOR-CON [Concomitant]
     Indication: LIVER DISORDER
     Route: 048
  8. CHLORZOXAZON [Concomitant]
     Indication: MUSCLE RELAXANT THERAPY
     Route: 048
  9. ETODOLAC [Concomitant]
     Indication: ANTIINFLAMMATORY THERAPY
     Route: 048
  10. FENTANYL-100 [Suspect]
     Indication: SURGERY
     Route: 062
     Dates: start: 20090101, end: 20090101
  11. FENTANYL-100 [Suspect]
     Indication: INTERVERTEBRAL DISC DEGENERATION
     Route: 062
     Dates: start: 20090101, end: 20090101
  12. ATENOLOL [Concomitant]
     Indication: HYPERTENSION
     Route: 048
  13. FENTANYL-100 [Suspect]
     Route: 062
     Dates: start: 20090101, end: 20090101

REACTIONS (7)
  - SKIN CANCER [None]
  - MEMORY IMPAIRMENT [None]
  - PAIN [None]
  - HYPERTENSION [None]
  - DRUG INEFFECTIVE [None]
  - SOMNOLENCE [None]
  - FLUSHING [None]
